FAERS Safety Report 6626009-5 (Version None)
Quarter: 2010Q1

REPORT INFORMATION
  Report Type: 
  Country: None (occurrence: None)
  Receive Date: 20100309
  Receipt Date: 20100309
  Transmission Date: 20100710
  Serious: No
  Sender: FDA-Public Use
  Company Number: None

PATIENT
  Sex: Female
  Weight: 68.0396 kg

DRUGS (2)
  1. (INTERFERON ALFA-2B, RECOMBINANT) [Suspect]
     Indication: MYCOSIS FUNGOIDES
     Dosage: 6 MIU 3X WEEK
     Dates: start: 20090401
  2. INTRON A [Suspect]
     Dates: start: 20091201

REACTIONS (3)
  - CONSTIPATION [None]
  - NAUSEA [None]
  - PRODUCT QUALITY ISSUE [None]
